FAERS Safety Report 6057861-2 (Version None)
Quarter: 2009Q1

REPORT INFORMATION
  Report Type: 
  Country: None (occurrence: None)
  Receive Date: 20090129
  Receipt Date: 20090121
  Transmission Date: 20090719
  Serious: Yes (Death, Hospitalization)
  Sender: FDA-Public Use
  Company Number: SE-WYE-H07886609

PATIENT
  Sex: Male

DRUGS (6)
  1. CORDARONE [Suspect]
     Indication: ATRIAL FIBRILLATION
     Dosage: INITIAL LOADING DOSE OF 500 MG OVER 2 HOURS FOLLOWED BY 60 MG/HOUR
     Route: 042
     Dates: start: 20080904, end: 20080904
  2. DIAZEPAM [Concomitant]
     Indication: SEDATION
  3. RAPIFEN [Interacting]
     Indication: ANAESTHESIA
     Route: 042
     Dates: start: 20080905
  4. HALOPERIDOL [Concomitant]
     Indication: SEDATION
  5. PROPOFOL [Interacting]
     Indication: ANAESTHESIA
     Route: 042
     Dates: start: 20080905
  6. CELOCURIN-KLORID [Interacting]
     Indication: ANAESTHESIA
     Route: 042
     Dates: start: 20080905

REACTIONS (3)
  - CARDIAC ARREST [None]
  - DRUG INTERACTION [None]
  - HYPOTENSION [None]
